FAERS Safety Report 17498662 (Version 3)
Quarter: 2020Q1

REPORT INFORMATION
  Report Type: Report from Study
  Country: CA (occurrence: CA)
  Receive Date: 20200304
  Receipt Date: 20200326
  Transmission Date: 20200409
  Serious: Yes (Hospitalization, Other)
  Sender: FDA-Public Use
  Company Number: CA-JNJFOC-20200231310

PATIENT
  Age: 22 Year
  Sex: Female
  Weight: 51.9 kg

DRUGS (1)
  1. STELARA [Suspect]
     Active Substance: USTEKINUMAB
     Indication: COLITIS ULCERATIVE
     Dosage: ON 19-FEB-2020, THE PATIENT RECEIVED 2ND USTEKINUMAB INFUSION FOR DOSE OF 260 MG AND PARTIAL MAYO WA
     Route: 042
     Dates: start: 20200219

REACTIONS (5)
  - Pain in extremity [Recovered/Resolved]
  - Colitis ulcerative [Not Recovered/Not Resolved]
  - Infusion related reaction [Recovered/Resolved]
  - Abdominal pain lower [Recovered/Resolved]
  - Hypersensitivity [Recovered/Resolved]

NARRATIVE: CASE EVENT DATE: 20200219
